FAERS Safety Report 8171135-5 (Version None)
Quarter: 2012Q1

REPORT INFORMATION
  Report Type: 
  Country: None (occurrence: None)
  Receive Date: 20120228
  Receipt Date: 20111229
  Transmission Date: 20120608
  Serious: No
  Sender: FDA-Public Use
  Company Number: US-BRISTOL-MYERS SQUIBB COMPANY-15764772

PATIENT
  Age: 52 Year
  Sex: Male
  Weight: 99 kg

DRUGS (5)
  1. ONGLYZA [Suspect]
     Dosage: USED FOR 45 DAYS FROM BMS SAMPLES.
  2. ACTOS [Concomitant]
     Dosage: ALSO 15MG TID
  3. METFORMIN HCL [Concomitant]
  4. GLYBURIDE AND METFORMIN HYDROCHLORIDE [Concomitant]
  5. PHENYLEPHRINE [Concomitant]

REACTIONS (5)
  - UPPER RESPIRATORY TRACT INFECTION [None]
  - DYSPNOEA [None]
  - NAIL INFECTION [None]
  - EPISTAXIS [None]
  - OEDEMA PERIPHERAL [None]
